FAERS Safety Report 7438206-X (Version None)
Quarter: 2011Q2

REPORT INFORMATION
  Report Type: 
  Country: None (occurrence: None)
  Receive Date: 20110421
  Receipt Date: 20110421
  Transmission Date: 20111010
  Serious: Yes (Hospitalization)
  Sender: FDA-Public Use
  Company Number: None

PATIENT
  Sex: Female
  Weight: 69.2 kg

DRUGS (13)
  1. EVEROLIMUS (RAD001) [Suspect]
     Indication: COLORECTAL CANCER
     Dosage: 10.0 MG PO QD
     Route: 048
     Dates: start: 20110322
  2. LOMOTIL [Suspect]
  3. NEXIUM [Concomitant]
  4. AMLODIPINE [Concomitant]
  5. ATIVAN [Concomitant]
  6. POTASSIUM CHLORIDE [Concomitant]
  7. LIDOCAINE HCL VISCOUS [Concomitant]
  8. ZOFRAN [Concomitant]
  9. ACETONIDE CREAM [Concomitant]
  10. DILAUDID [Concomitant]
  11. FENTANYL [Concomitant]
  12. TRIMCINOLONE [Concomitant]
  13. TIVOZINIB (1V-951) [Suspect]
     Indication: COLORECTAL CANCER
     Dosage: 1.0 MG PO QD
     Route: 048
     Dates: start: 20110322

REACTIONS (1)
  - DEHYDRATION [None]
